FAERS Safety Report 9139266 (Version 1)
Quarter: 2013Q1

REPORT INFORMATION
  Report Type: Spontaneous
  Country: US (occurrence: US)
  Receive Date: 20130305
  Receipt Date: 20130305
  Transmission Date: 20140127
  Serious: No
  Sender: FDA-Public Use
  Company Number: US-BAYER-2013-023327

PATIENT
  Age: 42 Year
  Sex: Female

DRUGS (2)
  1. CLIMARA [Suspect]
  2. CLIMARA [Suspect]

REACTIONS (6)
  - Product quality issue [None]
  - Rash [None]
  - Application site irritation [None]
  - Headache [None]
  - Skin disorder [None]
  - Product adhesion issue [None]
